FAERS Safety Report 9655355 (Version 1)
Quarter: 2013Q4

REPORT INFORMATION
  Report Type: Report from Study
  Country: US (occurrence: US)
  Receive Date: 20131029
  Receipt Date: 20131029
  Transmission Date: 20140711
  Serious: Yes (Hospitalization)
  Sender: FDA-Public Use
  Company Number: US-ROCHE-1292314

PATIENT
  Sex: 0

DRUGS (11)
  1. RITUXIMAB [Suspect]
     Indication: PRODUCT USED FOR UNKNOWN INDICATION
     Route: 042
     Dates: start: 20130926
  2. RITUXIMAB [Suspect]
     Route: 042
     Dates: start: 20131003
  3. RITUXIMAB [Suspect]
     Route: 042
     Dates: start: 20131010
  4. DEXAMETHASONE [Concomitant]
     Route: 042
     Dates: start: 20130926
  5. DEXAMETHASONE [Concomitant]
     Route: 042
     Dates: start: 20131003
  6. ACETAMINOPHEN [Concomitant]
     Route: 048
     Dates: start: 20130926
  7. ACETAMINOPHEN [Concomitant]
     Route: 048
     Dates: start: 20131003
  8. FAMOTIDINE [Concomitant]
     Route: 042
     Dates: start: 20130926
  9. FAMOTIDINE [Concomitant]
     Route: 042
     Dates: start: 20131003
  10. DIPHENHYDRAMINE HCL [Concomitant]
     Route: 042
     Dates: start: 20130926
  11. DIPHENHYDRAMINE HCL [Concomitant]
     Route: 042
     Dates: start: 20131003

REACTIONS (3)
  - Autoimmune haemolytic anaemia [Unknown]
  - Fatigue [Unknown]
  - Dizziness [Unknown]
